FAERS Safety Report 13665232 (Version 1)
Quarter: 2017Q2

REPORT INFORMATION
  Report Type: Spontaneous
  Country: US (occurrence: US)
  Receive Date: 20170619
  Receipt Date: 20170619
  Transmission Date: 20170830
  Serious: Yes (Life-Threatening, Disabling)
  Sender: FDA-Public Use
  Company Number: None

PATIENT
  Age: 53 Year
  Sex: Female
  Weight: 69.75 kg

DRUGS (1)
  1. CLONAZEPAM. [Suspect]
     Active Substance: CLONAZEPAM
     Indication: ANXIETY
     Dosage: ?          QUANTITY:3 TABLET(S);?
     Route: 048
     Dates: start: 20091010, end: 20140416

REACTIONS (8)
  - General symptom [None]
  - Suicidal ideation [None]
  - Dizziness [None]
  - Agoraphobia [None]
  - Incorrect drug administration duration [None]
  - Asthenia [None]
  - Pain [None]
  - Drug monitoring procedure incorrectly performed [None]

NARRATIVE: CASE EVENT DATE: 20140325
